FAERS Safety Report 9701160 (Version 1)
Quarter: 2013Q4

REPORT INFORMATION
  Report Type: Spontaneous
  Country: US (occurrence: US)
  Receive Date: 20131121
  Receipt Date: 20131121
  Transmission Date: 20140711
  Serious: No
  Sender: FDA-Public Use
  Company Number: US-GILEAD-2008-0015888

PATIENT
  Sex: Female
  Weight: 59.87 kg

DRUGS (8)
  1. LETAIRIS [Suspect]
     Indication: PULMONARY ARTERIAL HYPERTENSION
     Route: 048
     Dates: start: 20080229
  2. PREDNISONE [Concomitant]
     Route: 048
  3. LIPITOR [Concomitant]
     Route: 048
  4. ENABLEX [Concomitant]
     Route: 048
  5. METOPROLOL [Concomitant]
     Route: 048
  6. METFORMIN [Concomitant]
     Route: 048
  7. GLIMEPIRIDE [Concomitant]
     Route: 048
  8. ACTOS [Concomitant]
     Route: 048

REACTIONS (1)
  - Nasal congestion [Unknown]
